FAERS Safety Report 25427610 (Version 1)
Quarter: 2025Q2

REPORT INFORMATION
  Report Type: Report from Study
  Country: US (occurrence: US)
  Receive Date: 20250612
  Receipt Date: 20250612
  Transmission Date: 20250717
  Serious: Yes (Other)
  Sender: ABBVIE
  Company Number: US-ABBVIE-6309108

PATIENT
  Age: 68 Year
  Sex: Female
  Weight: 87 kg

DRUGS (3)
  1. HUMIRA [Suspect]
     Active Substance: ADALIMUMAB
     Indication: Rheumatoid arthritis
     Route: 058
     Dates: start: 20200930, end: 202501
  2. OXYCODONE [Concomitant]
     Active Substance: OXYCODONE
     Indication: Pain
  3. FENOFIBRATE [Concomitant]
     Active Substance: FENOFIBRATE
     Indication: Product used for unknown indication

REACTIONS (5)
  - Intervertebral disc protrusion [Recovered/Resolved]
  - Gait disturbance [Not Recovered/Not Resolved]
  - Unevaluable event [Recovered/Resolved]
  - Pain in extremity [Not Recovered/Not Resolved]
  - Arthralgia [Not Recovered/Not Resolved]

NARRATIVE: CASE EVENT DATE: 20200101
